FAERS Safety Report 6361703-5 (Version None)
Quarter: 2009Q3

REPORT INFORMATION
  Report Type: 
  Country: None (occurrence: None)
  Receive Date: 20090918
  Receipt Date: 20090908
  Transmission Date: 20100115
  Serious: Yes (Hospitalization)
  Sender: FDA-Public Use
  Company Number: NL-GENENTECH-290185

PATIENT
  Sex: Female
  Weight: 60 kg

DRUGS (4)
  1. LUCENTIS [Suspect]
     Indication: MACULAR DEGENERATION
     Dosage: 10 MG/ML, UNK
     Route: 031
     Dates: start: 20090819
  2. NORVASC [Concomitant]
     Indication: DRUG USE FOR UNKNOWN INDICATION
     Dosage: UNK
     Dates: start: 20020228
  3. COZAAR [Concomitant]
     Indication: DRUG USE FOR UNKNOWN INDICATION
     Dosage: UNK
     Dates: start: 20040928
  4. METOPROLOL TARTRATE [Concomitant]
     Indication: DRUG USE FOR UNKNOWN INDICATION
     Dosage: UNK
     Dates: start: 20050224

REACTIONS (2)
  - DYSPNOEA [None]
  - FATIGUE [None]
